FAERS Safety Report 25138482 (Version 2)
Quarter: 2025Q2

REPORT INFORMATION
  Report Type: Spontaneous
  Country: US (occurrence: US)
  Receive Date: 20250330
  Receipt Date: 20250523
  Transmission Date: 20250717
  Serious: Yes (Other)
  Sender: CSL BEHRING
  Company Number: US-BEH-2025200107

PATIENT
  Age: 4 Year
  Sex: Male

DRUGS (13)
  1. IDELVION [Suspect]
     Active Substance: COAGULATION FACTOR IX RECOMBINANT HUMAN
     Indication: Factor IX deficiency
     Dosage: STRENGTH 250, 1836 - 2040 IU, QOW
     Route: 042
     Dates: start: 202011
  2. IDELVION [Suspect]
     Active Substance: COAGULATION FACTOR IX RECOMBINANT HUMAN
     Indication: Factor IX deficiency
     Dosage: STRENGTH 250, 1836 - 2040 IU, QOW
     Route: 042
     Dates: start: 202011
  3. IDELVION [Suspect]
     Active Substance: COAGULATION FACTOR IX RECOMBINANT HUMAN
     Route: 042
     Dates: start: 202011
  4. IDELVION [Suspect]
     Active Substance: COAGULATION FACTOR IX RECOMBINANT HUMAN
     Route: 042
     Dates: start: 202011
  5. IDELVION [Suspect]
     Active Substance: COAGULATION FACTOR IX RECOMBINANT HUMAN
     Dosage: STRENGTH 500, 1836 - 2040 IU, QOW
     Route: 042
     Dates: start: 202011
  6. IDELVION [Suspect]
     Active Substance: COAGULATION FACTOR IX RECOMBINANT HUMAN
     Dosage: STRENGTH 500, 1836 - 2040 IU, QOW
     Route: 042
     Dates: start: 202011
  7. IDELVION [Suspect]
     Active Substance: COAGULATION FACTOR IX RECOMBINANT HUMAN
     Route: 042
     Dates: start: 202011
  8. IDELVION [Suspect]
     Active Substance: COAGULATION FACTOR IX RECOMBINANT HUMAN
     Route: 042
     Dates: start: 202011
  9. IDELVION [Suspect]
     Active Substance: COAGULATION FACTOR IX RECOMBINANT HUMAN
     Dosage: STRENGTH 1000, 1836 - 2040 IU, QOW
     Route: 042
     Dates: start: 202011
  10. IDELVION [Suspect]
     Active Substance: COAGULATION FACTOR IX RECOMBINANT HUMAN
     Dosage: STRENGTH 1000, 1836 - 2040 IU, QOW
     Route: 042
     Dates: start: 202011
  11. IDELVION [Suspect]
     Active Substance: COAGULATION FACTOR IX RECOMBINANT HUMAN
     Route: 042
     Dates: start: 202011
  12. IDELVION [Suspect]
     Active Substance: COAGULATION FACTOR IX RECOMBINANT HUMAN
     Route: 042
     Dates: start: 202011
  13. Aminocaproic acid advanced [Concomitant]
     Route: 048

REACTIONS (2)
  - Haemorrhage [Unknown]
  - Ear infection [Unknown]

NARRATIVE: CASE EVENT DATE: 20250427
